FAERS Safety Report 12376921 (Version 1)
Quarter: 2016Q2

REPORT INFORMATION
  Report Type: Report from Study
  Country: US (occurrence: US)
  Receive Date: 20160517
  Receipt Date: 20160517
  Transmission Date: 20160815
  Serious: No
  Sender: FDA-Public Use
  Company Number: US-MALLINCKRODT-T201503588

PATIENT
  Sex: Female

DRUGS (4)
  1. REPOSITORY CORTICOTROPIN INJECTION [Suspect]
     Active Substance: CORTICOTROPIN
     Dosage: 16 UNITS, WEEKLY
     Route: 030
     Dates: start: 20150926, end: 20150926
  2. REPOSITORY CORTICOTROPIN INJECTION [Suspect]
     Active Substance: CORTICOTROPIN
     Dosage: 48 UNITS/1X A WEEK
     Route: 058
     Dates: start: 20150423
  3. REPOSITORY CORTICOTROPIN INJECTION [Suspect]
     Active Substance: CORTICOTROPIN
     Indication: DERMATOMYOSITIS
     Dosage: 64 UNITS, WEEKLY
     Route: 030
  4. REPOSITORY CORTICOTROPIN INJECTION [Suspect]
     Active Substance: CORTICOTROPIN
     Dosage: 32 UNITS, WEEKLY
     Route: 030

REACTIONS (2)
  - Injection site bruising [Unknown]
  - Swelling face [Unknown]
